FAERS Safety Report 16154075 (Version 3)
Quarter: 2025Q3

REPORT INFORMATION
  Report Type: Spontaneous
  Country: EU (occurrence: EU)
  Receive Date: 20190403
  Receipt Date: 20250919
  Transmission Date: 20251021
  Serious: Yes (Other)
  Sender: MYLAN
  Company Number: None

PATIENT
  Age: 27 Year
  Sex: Female
  Weight: 94 kg

DRUGS (16)
  1. DOXEPIN [Suspect]
     Active Substance: DOXEPIN
     Indication: Depression
     Route: 048
  2. DOXEPIN [Suspect]
     Active Substance: DOXEPIN
     Indication: Panic disorder
  3. DOXEPIN [Suspect]
     Active Substance: DOXEPIN
  4. DOXEPIN [Suspect]
     Active Substance: DOXEPIN
     Route: 048
  5. DOXEPIN [Suspect]
     Active Substance: DOXEPIN
  6. DOXEPIN [Suspect]
     Active Substance: DOXEPIN
  7. DOXEPIN [Suspect]
     Active Substance: DOXEPIN
     Route: 048
  8. DOXEPIN [Suspect]
     Active Substance: DOXEPIN
     Route: 048
  9. DOXEPIN [Suspect]
     Active Substance: DOXEPIN
     Route: 048
  10. DOXEPIN [Suspect]
     Active Substance: DOXEPIN
  11. DOXEPIN [Suspect]
     Active Substance: DOXEPIN
  12. DOXEPIN [Suspect]
     Active Substance: DOXEPIN
     Route: 048
  13. DOXEPIN [Suspect]
     Active Substance: DOXEPIN
     Indication: Depression
  14. DOXEPIN [Suspect]
     Active Substance: DOXEPIN
     Indication: Anxiety
     Route: 048
  15. DOXEPIN [Suspect]
     Active Substance: DOXEPIN
     Indication: Panic disorder
     Route: 048
  16. DOXEPIN [Suspect]
     Active Substance: DOXEPIN

REACTIONS (14)
  - Papilloedema [Recovered/Resolved]
  - Idiopathic intracranial hypertension [Recovered/Resolved with Sequelae]
  - Photophobia [Recovering/Resolving]
  - Foreign body sensation in eyes [Recovering/Resolving]
  - Insomnia [Unknown]
  - Headache [Unknown]
  - Restlessness [Unknown]
  - Eye pain [Recovered/Resolved]
  - Tinnitus [Unknown]
  - Optic nerve disorder [Unknown]
  - Visual impairment [Unknown]
  - Vision blurred [Unknown]
  - Dry eye [Unknown]
  - Eye irritation [Unknown]

NARRATIVE: CASE EVENT DATE: 20180101
